FAERS Safety Report 8328771-2 (Version None)
Quarter: 2012Q2

REPORT INFORMATION
  Report Type: 
  Country: None (occurrence: None)
  Receive Date: 20120502
  Receipt Date: 20120424
  Transmission Date: 20120825
  Serious: Yes (Hospitalization)
  Sender: FDA-Public Use
  Company Number: IE-B.I. PHARMACEUTICALS,INC./RIDGEFIELD-2012-UK-00037UK

PATIENT
  Sex: Female

DRUGS (4)
  1. LIPITOR [Concomitant]
  2. PRADAXA [Suspect]
     Indication: ATRIAL FIBRILLATION
     Dosage: 220 MG
     Route: 048
     Dates: start: 20110406
  3. ATACAND [Concomitant]
  4. NSAID'S [Concomitant]

REACTIONS (1)
  - CEREBROVASCULAR ACCIDENT [None]
